FAERS Safety Report 6766749-0 (Version None)
Quarter: 2010Q2

REPORT INFORMATION
  Report Type: 
  Country: None (occurrence: None)
  Receive Date: 20100611
  Receipt Date: 20100531
  Transmission Date: 20101027
  Serious: Yes (Death, Hospitalization)
  Sender: FDA-Public Use
  Company Number: GR-PFIZER INC-2010068297

PATIENT
  Age: 62 Year
  Sex: Male

DRUGS (1)
  1. SUNITINIB MALATE [Suspect]
     Indication: MALIGNANT FIBROUS HISTIOCYTOMA
     Dosage: UNK

REACTIONS (6)
  - DEATH [None]
  - DECREASED APPETITE [None]
  - MUCOSAL INFLAMMATION [None]
  - NEUROPATHY PERIPHERAL [None]
  - SKIN LESION [None]
  - WEIGHT DECREASED [None]
